FAERS Safety Report 4431155-0 (Version None)
Quarter: 2004Q3

REPORT INFORMATION
  Report Type: 
  Country: None (occurrence: None)
  Receive Date: 20040818
  Receipt Date: 20040804
  Transmission Date: 20050211
  Serious: Yes (Hospitalization)
  Sender: FDA-Public Use
  Company Number: 2004-BP-05345BP

PATIENT
  Age: 95 Year
  Sex: Male
  Weight: 54.4 kg

DRUGS (3)
  1. FLOMAX [Suspect]
     Indication: URINARY TRACT DISORDER
     Dosage: 5 MG (5 MG), PO
     Route: 048
     Dates: start: 20040301
  2. KLONOPIN [Concomitant]
  3. BUSPAR (BUSPIRONE HYRDORHCLORIDE) [Concomitant]

REACTIONS (4)
  - ANXIETY [None]
  - INFECTION [None]
  - NAUSEA [None]
  - URINARY RETENTION [None]
